FAERS Safety Report 12310763 (Version 2)
Quarter: 2016Q2

REPORT INFORMATION
  Report Type: Spontaneous
  Country: CN (occurrence: CN)
  Receive Date: 20160427
  Receipt Date: 20160428
  Transmission Date: 20160815
  Serious: Yes (Hospitalization)
  Sender: FDA-Public Use
  Company Number: PHHY2016CN053853

PATIENT
  Age: 66 Year
  Sex: Male
  Weight: 75 kg

DRUGS (2)
  1. AMITRIPTYLINE HYDROCHLORIDE. [Suspect]
     Active Substance: AMITRIPTYLINE HYDROCHLORIDE
     Indication: NEURALGIA
     Dosage: 25 MG, TID
     Route: 048
     Dates: start: 20151009, end: 20151013
  2. TEGRETOL [Suspect]
     Active Substance: CARBAMAZEPINE
     Indication: NEURALGIA
     Dosage: 0.2 G, QID
     Route: 048
     Dates: start: 20151009, end: 20151013

REACTIONS (2)
  - Rash [Recovering/Resolving]
  - Genital ulceration [Recovering/Resolving]

NARRATIVE: CASE EVENT DATE: 20151013
